FAERS Safety Report 7527679-X (Version None)
Quarter: 2011Q2

REPORT INFORMATION
  Report Type: 
  Country: None (occurrence: None)
  Receive Date: 20110607
  Receipt Date: 20110523
  Transmission Date: 20111010
  Serious: Yes (Other)
  Sender: FDA-Public Use
  Company Number: PHHY2011US40386

PATIENT
  Sex: Female
  Weight: 74 kg

DRUGS (13)
  1. FEMARA [Concomitant]
     Dosage: 2.5 MG, DAILY
     Route: 048
     Dates: start: 20070701
  2. HERCEPTIN [Concomitant]
     Dosage: 6 MG/KG EVERY 3 WEEK
     Dates: start: 20101008
  3. ALDACTONE [Concomitant]
     Dosage: 25 MG, DAILY
     Route: 048
  4. RISPERDAL [Concomitant]
     Dosage: 25 MG, DAILY
     Route: 048
  5. VICODIN [Concomitant]
     Indication: PAIN
     Dosage: 5/500 1 TABLET EVERY 6 HOURS
  6. ZOMETA [Suspect]
     Indication: BREAST CANCER METASTATIC
     Dosage: QMO
     Route: 042
     Dates: start: 20071001, end: 20110101
  7. HERCEPTIN [Concomitant]
     Dosage: 4 MG/ KG WEEKLY (149 WEEKLY DOSES)
     Route: 042
     Dates: start: 20071019, end: 20101001
  8. ASPIRIN [Concomitant]
     Route: 048
  9. IBUPROFEN [Concomitant]
     Dosage: 600 MG, EVERY 6 HOURS
  10. TYLENOL-500 [Concomitant]
  11. CEFTIN [Concomitant]
  12. LISINOPRIL [Concomitant]
     Dosage: 10 MG, DAILY
     Route: 048
  13. HERCEPTIN [Concomitant]
     Indication: BREAST CANCER
     Dosage: 2 MG/KG
     Route: 042

REACTIONS (15)
  - POOR DENTAL CONDITION [None]
  - METASTASES TO LUNG [None]
  - PYREXIA [None]
  - ABSCESS JAW [None]
  - METASTASES TO ADRENALS [None]
  - COUGH [None]
  - OSTEONECROSIS OF JAW [None]
  - FATIGUE [None]
  - OSTEOMYELITIS [None]
  - ACTINOMYCOSIS [None]
  - METASTASES TO BONE [None]
  - CHILLS [None]
  - FACE OEDEMA [None]
  - PAIN [None]
  - SPEECH DISORDER [None]
